FAERS Safety Report 21946948 (Version 3)
Quarter: 2023Q1

REPORT INFORMATION
  Report Type: Report from Study
  Country: AR (occurrence: AR)
  Receive Date: 20230202
  Receipt Date: 20230213
  Transmission Date: 20230418
  Serious: Yes (Hospitalization)
  Sender: FDA-Public Use
  Company Number: AR-JNJFOC-20230151230

PATIENT
  Age: 74 Year
  Sex: Male

DRUGS (3)
  1. SPRAVATO [Suspect]
     Active Substance: ESKETAMINE
     Indication: Depression
     Dates: start: 20211221
  2. QUETIAPINE [Concomitant]
     Active Substance: QUETIAPINE
     Dosage: 400 (UNSPECIFIED UNITS)
     Route: 065
  3. QUETIAPINE [Concomitant]
     Active Substance: QUETIAPINE
     Dosage: 300 (UNSPECIFIED UNITS)
     Route: 065

REACTIONS (3)
  - Atrioventricular block [Recovering/Resolving]
  - Adverse event [Recovering/Resolving]
  - General physical health deterioration [Unknown]
